FAERS Safety Report 9736100 (Version 3)
Quarter: 2014Q1

REPORT INFORMATION
  Report Type: Spontaneous
  Country: FR (occurrence: FR)
  Receive Date: 20131206
  Receipt Date: 20140110
  Transmission Date: 20141002
  Serious: Yes (Hospitalization)
  Sender: FDA-Public Use
  Company Number: FR-GLAXOSMITHKLINE-B0950249A

PATIENT
  Age: 86 Year
  Sex: Female

DRUGS (11)
  1. ARIXTRA [Suspect]
     Indication: PRODUCT USED FOR UNKNOWN INDICATION
     Dosage: 7.5MG PER DAY
     Route: 058
     Dates: start: 20131112, end: 20131122
  2. CARDENSIEL [Concomitant]
  3. ALDACTONE [Concomitant]
  4. LASILIX [Concomitant]
  5. ALPRESS [Concomitant]
  6. RYTHMODAN [Concomitant]
  7. ARICEPT [Concomitant]
  8. FOSAMAX [Concomitant]
  9. INEXIUM [Concomitant]
  10. LOVENOX [Concomitant]
     Indication: TRANSIENT ISCHAEMIC ATTACK
     Dates: start: 201311
  11. CALCIPARINE [Concomitant]
     Indication: TRANSIENT ISCHAEMIC ATTACK
     Dates: start: 201311

REACTIONS (6)
  - Melaena [Recovered/Resolved]
  - Anaemia [Recovered/Resolved]
  - Peptic ulcer [Unknown]
  - Pallor [Unknown]
  - Conjunctival pallor [Unknown]
  - Off label use [Unknown]
